FAERS Safety Report 23644541 (Version 1)
Quarter: 2024Q1

REPORT INFORMATION
  Report Type: Spontaneous
  Country: EG (occurrence: EG)
  Receive Date: 20240318
  Receipt Date: 20240318
  Transmission Date: 20240410
  Serious: Yes (Hospitalization, Other)
  Sender: FDA-Public Use
  Company Number: EG-HIKMA PHARMACEUTICALS-EG-H14001-24-02241

PATIENT
  Age: 32 Year
  Sex: Female
  Weight: 85 kg

DRUGS (5)
  1. CARBOPLATIN [Suspect]
     Active Substance: CARBOPLATIN
     Indication: Breast cancer
     Dosage: 750 MILLIGRAM, DAY 1, EVERY 4 WEEKS
     Route: 041
     Dates: start: 20231227
  2. CARBOPLATIN [Suspect]
     Active Substance: CARBOPLATIN
     Dosage: 750 MILLIGRAM, EVERY 4 WEEKS
     Route: 041
     Dates: start: 20240127
  3. PACLITAXEL [Suspect]
     Active Substance: PACLITAXEL
     Dosage: 144 MILLIGRAM
     Route: 041
     Dates: start: 20240127
  4. PACLITAXEL [Suspect]
     Active Substance: PACLITAXEL
     Indication: Breast cancer
     Dosage: 144 MILLIGRAM, DAY 1
     Route: 041
     Dates: start: 20231227
  5. PACLITAXEL [Suspect]
     Active Substance: PACLITAXEL
     Dosage: 144 MILLIGRAM, DAY 8
     Route: 041
     Dates: start: 20240103

REACTIONS (4)
  - Anaemia [Recovering/Resolving]
  - Nausea [Not Recovered/Not Resolved]
  - Bone pain [Not Recovered/Not Resolved]
  - Abdominal rigidity [Not Recovered/Not Resolved]

NARRATIVE: CASE EVENT DATE: 20231228
